FAERS Safety Report 7926971-4 (Version None)
Quarter: 2011Q4

REPORT INFORMATION
  Report Type: 
  Country: None (occurrence: None)
  Receive Date: 20111116
  Receipt Date: 20111108
  Transmission Date: 20120403
  Serious: Yes (Other)
  Sender: FDA-Public Use
  Company Number: 2011-01269

PATIENT
  Age: 78 Year
  Sex: Male

DRUGS (6)
  1. DOXAZOSIN MESYLATE [Concomitant]
  2. DILTIAZEM HYDROCHLORIDE (VIAZEM XL) [Concomitant]
  3. SIMVASTATIN [Concomitant]
  4. ASPIRIN [Concomitant]
  5. LOSARTAN (TABLETS) [Suspect]
     Indication: HYPERTENSION
     Dosage: 25 MG (25 MG, 1 IN 1 D), ORAL
     Route: 048
     Dates: start: 20111024, end: 20111028
  6. SALBUTAMOL + SALBUTAMOL BASE + SALBUTAMOL SULPHATE + SALBUTAMOL SULPHA [Concomitant]

REACTIONS (2)
  - ASTHMA [None]
  - CONDITION AGGRAVATED [None]
